FAERS Safety Report 5240180-1 (Version None)
Quarter: 2007Q1

REPORT INFORMATION
  Report Type: 
  Country: None (occurrence: None)
  Receive Date: 20070219
  Receipt Date: 20070208
  Transmission Date: 20070707
  Serious: Yes (Hospitalization)
  Sender: FDA-Public Use
  Company Number: JP-SP-2006-01339

PATIENT
  Age: 78 Year
  Sex: Male

DRUGS (5)
  1. IMMUCYST [Suspect]
     Indication: BLADDER CANCER
     Route: 043
     Dates: start: 20051031, end: 20051208
  2. CARBIDOPA AND LEVODOPA [Concomitant]
     Route: 048
     Dates: end: 20060410
  3. TRIHEXYPHENIDYL HYDROCHLORIDE [Concomitant]
     Route: 048
     Dates: end: 20060410
  4. SOFALCONE [Concomitant]
     Route: 048
     Dates: end: 20060410
  5. SENNOSIDE [Concomitant]
     Dosage: UNK
     Route: 048
     Dates: end: 20060410

REACTIONS (1)
  - PYREXIA [None]
